FAERS Safety Report 6336639-6 (Version None)
Quarter: 2009Q3

REPORT INFORMATION
  Report Type: 
  Country: None (occurrence: None)
  Receive Date: 20090831
  Receipt Date: 20090831
  Transmission Date: 20100115
  Serious: Yes (Hospitalization)
  Sender: FDA-Public Use
  Company Number: None

PATIENT
  Sex: Female
  Weight: 83.9 kg

DRUGS (5)
  1. CETUXIMAB 250 MG/M2 BRISTOL MYERS SQUIBB [Suspect]
     Indication: CERVIX CARCINOMA
     Dosage: 445 MG WEEKLY IV
     Route: 042
     Dates: start: 20060831, end: 20060831
  2. CETUXIMAB 250 MG/M2 BRISTOL MYERS SQUIBB [Suspect]
     Indication: CERVIX CARCINOMA
     Dosage: 473 MG WEEKLY IV
     Route: 042
     Dates: start: 20060907, end: 20060914
  3. DOXYCYCLINE [Concomitant]
  4. ROSIGLITAZONE [Concomitant]
  5. DOCUSATE [Concomitant]

REACTIONS (6)
  - ASCITES [None]
  - ENTERITIS [None]
  - INTESTINAL DILATATION [None]
  - PERICARDIAL EFFUSION [None]
  - PLEURAL EFFUSION [None]
  - SMALL INTESTINAL OBSTRUCTION [None]
